FAERS Safety Report 9290411 (Version 2)
Quarter: 2013Q3

REPORT INFORMATION
  Report Type: Spontaneous
  Country: JP (occurrence: JP)
  Receive Date: 20130515
  Receipt Date: 20130705
  Transmission Date: 20140515
  Serious: Yes (Other)
  Sender: FDA-Public Use
  Company Number: JP-PFIZER INC-2013149733

PATIENT
  Age: 83 Year
  Sex: Female

DRUGS (2)
  1. JZOLOFT [Suspect]
     Indication: DEPRESSIVE SYMPTOM
     Dosage: 25 MG, 2X/DAY
     Route: 048
  2. JZOLOFT [Suspect]
     Dosage: 25 MG, 1X/DAY

REACTIONS (4)
  - Dizziness [Recovered/Resolved]
  - Somnolence [Unknown]
  - Gait disturbance [Recovered/Resolved]
  - Fall [Unknown]
